FAERS Safety Report 8012966-1 (Version None)
Quarter: 2011Q4

REPORT INFORMATION
  Report Type: 
  Country: None (occurrence: None)
  Receive Date: 20111223
  Receipt Date: 20111208
  Transmission Date: 20120403
  Serious: Yes (Hospitalization, Other)
  Sender: FDA-Public Use
  Company Number: CRC-11-330

PATIENT
  Age: 45 Year
  Sex: Male

DRUGS (4)
  1. OXALIPLATIN [Suspect]
     Indication: METASTASES TO LUNG
     Dosage: 80 MG/M2 DAY 1
     Dates: start: 20100801
  2. CALCIUM FOLINATE [Concomitant]
  3. GRANISETRON 3MG [Concomitant]
  4. DEXAMETHASONEC [Concomitant]

REACTIONS (5)
  - CONFUSIONAL STATE [None]
  - HYPOTENSION [None]
  - MYOCARDIAL ISCHAEMIA [None]
  - HYPERHIDROSIS [None]
  - DYSPNOEA [None]
